FAERS Safety Report 5375618-2 (Version None)
Quarter: 2007Q2

REPORT INFORMATION
  Report Type: 
  Country: None (occurrence: None)
  Receive Date: 20070629
  Receipt Date: 20070625
  Transmission Date: 20071010
  Serious: Yes (Life-Threatening, Other)
  Sender: FDA-Public Use
  Company Number: GB-MERCK-0706GBR00105

PATIENT
  Age: 64 Year
  Sex: Female
  Weight: 48 kg

DRUGS (5)
  1. FOSAMAX [Suspect]
     Indication: OSTEOPOROSIS
     Route: 048
     Dates: start: 20070507, end: 20070515
  2. DIHYDROCODEINE [Concomitant]
     Indication: ARTHRITIS
     Route: 048
     Dates: start: 20070329
  3. FLUTICASONE PROPIONATE [Concomitant]
     Indication: ASTHMA
     Dates: start: 20060517
  4. PREDNISOLONE [Concomitant]
     Indication: ARTHRITIS
     Route: 048
     Dates: start: 20070329
  5. ALBUTEROL [Concomitant]
     Indication: ASTHMA
     Dates: start: 20061207

REACTIONS (2)
  - DERMATITIS [None]
  - OEDEMA PERIPHERAL [None]
